FAERS Safety Report 11265606 (Version 1)
Quarter: 2015Q3

REPORT INFORMATION
  Report Type: Spontaneous
  Country: US (occurrence: US)
  Receive Date: 20150713
  Receipt Date: 20150713
  Transmission Date: 20151125
  Serious: No
  Sender: FDA-Public Use
  Company Number: US-MPIJNJ-2012-06838

PATIENT
  Age: 87 Year
  Sex: Female
  Weight: 67.57 kg

DRUGS (5)
  1. MELPHALAN [Suspect]
     Active Substance: MELPHALAN
     Indication: PLASMA CELL MYELOMA
     Dosage: 12 MG, CYCLIC
     Route: 048
     Dates: start: 20111229
  2. MOBIC [Concomitant]
     Active Substance: MELOXICAM
     Indication: PRODUCT USED FOR UNKNOWN INDICATION
     Dosage: UNK
  3. VELCADE [Suspect]
     Active Substance: BORTEZOMIB
     Indication: PLASMA CELL MYELOMA
     Dosage: 2 MG, CYCLIC
     Route: 040
     Dates: start: 20111229
  4. VELCADE [Suspect]
     Active Substance: BORTEZOMIB
     Dosage: 2 MG, CYCLIC
     Route: 058
     Dates: start: 20120906
  5. PREDNISONE. [Suspect]
     Active Substance: PREDNISONE
     Indication: PLASMA CELL MYELOMA
     Dosage: 60 MG, CYCLIC
     Route: 048
     Dates: start: 20111229

REACTIONS (3)
  - Pruritus generalised [Recovered/Resolved]
  - Swelling [Recovered/Resolved]
  - Rash erythematous [Recovered/Resolved]

NARRATIVE: CASE EVENT DATE: 201209
